FAERS Safety Report 8330429-0 (Version None)
Quarter: 2012Q2

REPORT INFORMATION
  Report Type: 
  Country: None (occurrence: None)
  Receive Date: 20120502
  Receipt Date: 20120401
  Transmission Date: 20120825
  Serious: Yes (Other)
  Sender: FDA-Public Use
  Company Number: US-AMGEN-USASP2012020925

PATIENT
  Age: 69 Year
  Sex: Male

DRUGS (2)
  1. ENBREL [Suspect]
     Indication: RHEUMATOID ARTHRITIS
     Dosage: 50 MG, QWK
     Dates: start: 20000101, end: 20120301
  2. METHOTREXATE [Concomitant]
     Dosage: 4 MG, UNK
     Dates: start: 20120302

REACTIONS (2)
  - RHEUMATOID ARTHRITIS [None]
  - SKIN CANCER [None]
